FAERS Safety Report 8281870-6 (Version None)
Quarter: 2012Q2

REPORT INFORMATION
  Report Type: 
  Country: None (occurrence: None)
  Receive Date: 20120413
  Receipt Date: 20120410
  Transmission Date: 20120825
  Serious: Yes (Other)
  Sender: FDA-Public Use
  Company Number: PHHY2012DE009613

PATIENT
  Sex: Female
  Weight: 64 kg

DRUGS (4)
  1. ZOLEDRONOC ACID [Suspect]
     Indication: OSTEOPOROSIS
     Dosage: 5 MG, YEARLY
     Route: 042
     Dates: start: 20110328
  2. CORINFAR [Concomitant]
     Dosage: 10 MG, UNK
  3. LORZAAR [Concomitant]
     Dosage: 50 MG, UNK
  4. VITAMIN D [Concomitant]
     Indication: OSTEOPOROSIS
     Dosage: 1 DF, QD
     Dates: start: 20101001

REACTIONS (5)
  - HEADACHE [None]
  - GINGIVAL DISORDER [None]
  - GINGIVAL BLEEDING [None]
  - CARDIOVASCULAR DISORDER [None]
  - GINGIVAL RECESSION [None]
